FAERS Safety Report 23885007 (Version 2)
Quarter: 2024Q2

REPORT INFORMATION
  Report Type: Spontaneous
  Country: FR (occurrence: FR)
  Receive Date: 20240522
  Receipt Date: 20240531
  Transmission Date: 20240715
  Serious: Yes (Hospitalization)
  Sender: FDA-Public Use
  Company Number: None

PATIENT
  Age: 57 Year
  Sex: Male
  Weight: 63 kg

DRUGS (4)
  1. PANTOPRAZOLE [Suspect]
     Active Substance: PANTOPRAZOLE
     Indication: Product used for unknown indication
     Route: 048
     Dates: end: 20240411
  2. BACTRIM [Suspect]
     Active Substance: SULFAMETHOXAZOLE\TRIMETHOPRIM
     Indication: Prophylaxis
     Dosage: 1 CUP MONDAY, WEDNESDAY, FRIDAY
     Route: 048
  3. EFFEXOR [Suspect]
     Active Substance: VENLAFAXINE HYDROCHLORIDE
     Indication: Anxiety
     Route: 048
     Dates: start: 20240402, end: 20240411
  4. VALACYCLOVIR HYDROCHLORIDE [Suspect]
     Active Substance: VALACYCLOVIR HYDROCHLORIDE
     Indication: Product used for unknown indication
     Route: 048

REACTIONS (1)
  - Neutropenia [Recovered/Resolved]

NARRATIVE: CASE EVENT DATE: 20240402
